FAERS Safety Report 9024485 (Version 1)
Quarter: 2013Q1

REPORT INFORMATION
  Report Type: Spontaneous
  Country: US (occurrence: None)
  Receive Date: 20130122
  Receipt Date: 20130122
  Transmission Date: 20140127
  Serious: Yes (Other)
  Sender: FDA-Public Use
  Company Number: None

PATIENT
  Age: 69 Year
  Sex: Female
  Weight: 78.93 kg

DRUGS (1)
  1. METHYLPREDNISOLONE ACETATE [Suspect]
     Dosage: 60MG PRN INTRA-ARTICULAR
     Route: 014
     Dates: start: 20120717, end: 20120926

REACTIONS (2)
  - Headache [None]
  - Photophobia [None]
